FAERS Safety Report 9101528 (Version 2)
Quarter: 2013Q1

REPORT INFORMATION
  Report Type: Spontaneous
  Country: NO (occurrence: NO)
  Receive Date: 20130218
  Receipt Date: 20130301
  Transmission Date: 20140127
  Serious: Yes (Other)
  Sender: FDA-Public Use
  Company Number: NO-ABBOTT-13P-122-1051135-00

PATIENT
  Sex: Male

DRUGS (2)
  1. HUMIRA [Suspect]
     Indication: ANKYLOSING SPONDYLITIS
     Dates: start: 201110
  2. HUMIRA [Suspect]
     Dates: end: 201302

REACTIONS (5)
  - Infarction [Unknown]
  - Unevaluable event [Unknown]
  - Vasculitis [Unknown]
  - Hypoaesthesia [Recovering/Resolving]
  - Muscular weakness [Recovering/Resolving]
